FAERS Safety Report 11653391 (Version 1)
Quarter: 2015Q4

REPORT INFORMATION
  Report Type: Spontaneous
  Country: US (occurrence: US)
  Receive Date: 20151022
  Receipt Date: 20151022
  Transmission Date: 20160304
  Serious: No
  Sender: FDA-Public Use
  Company Number: US-DEP_07983_2015

PATIENT
  Sex: Male
  Weight: 134 kg

DRUGS (5)
  1. HYDROCODONE [Concomitant]
     Active Substance: HYDROCODONE
     Indication: PAIN
     Dosage: 2 DF, 1/DAY
     Dates: start: 2014
  2. DURAGESIC [Suspect]
     Active Substance: FENTANYL
     Indication: PAIN
     Dosage: 50 MCG/H, EVERY 3 DAYS
     Route: 062
     Dates: start: 2014
  3. NUCYNTA ER [Suspect]
     Active Substance: TAPENTADOL HYDROCHLORIDE
     Indication: PAIN
     Dosage: 100 MG, 2/DAY
     Dates: start: 201501
  4. NUCYNTA ER [Suspect]
     Active Substance: TAPENTADOL HYDROCHLORIDE
     Indication: SPINAL FUSION SURGERY
     Dosage: 100 MG, 2/DAY
     Dates: start: 201501
  5. DURAGESIC [Suspect]
     Active Substance: FENTANYL
     Indication: SPINAL FUSION SURGERY
     Dosage: 25 MCG/H, EVERY 3 DAYS
     Route: 062

REACTIONS (3)
  - Drug ineffective [Not Recovered/Not Resolved]
  - Drug effect decreased [Not Recovered/Not Resolved]
  - Inappropriate schedule of drug administration [Not Recovered/Not Resolved]
